FAERS Safety Report 7739158-5 (Version None)
Quarter: 2011Q3

REPORT INFORMATION
  Report Type: 
  Country: None (occurrence: None)
  Receive Date: 20110909
  Receipt Date: 20110901
  Transmission Date: 20111222
  Serious: Yes (Hospitalization)
  Sender: FDA-Public Use
  Company Number: US-BIOGENIDEC-2011BI021856

PATIENT
  Age: 35 Year
  Sex: Female

DRUGS (1)
  1. AVONEX [Suspect]
     Indication: MULTIPLE SCLEROSIS
     Route: 030
     Dates: start: 20110121

REACTIONS (6)
  - MEMORY IMPAIRMENT [None]
  - WEIGHT INCREASED [None]
  - ANGER [None]
  - UTERINE CYST [None]
  - FATIGUE [None]
  - MULTIPLE SCLEROSIS RELAPSE [None]
